FAERS Safety Report 12195499 (Version 1)
Quarter: 2016Q1

REPORT INFORMATION
  Report Type: Spontaneous
  Country: US (occurrence: US)
  Receive Date: 20160321
  Receipt Date: 20160321
  Transmission Date: 20160526
  Serious: Yes (Hospitalization, Other)
  Sender: FDA-Public Use
  Company Number: US-JNJFOC-20160315798

PATIENT
  Sex: Female
  Weight: 42 kg

DRUGS (17)
  1. NUCYNTA [Suspect]
     Active Substance: TAPENTADOL HYDROCHLORIDE
     Indication: PAIN IN JAW
     Route: 048
     Dates: start: 2014, end: 201601
  2. NUCYNTA ER [Suspect]
     Active Substance: TAPENTADOL HYDROCHLORIDE
     Indication: PAIN IN JAW
     Route: 065
     Dates: start: 2014, end: 2014
  3. NUCYNTA ER [Suspect]
     Active Substance: TAPENTADOL HYDROCHLORIDE
     Indication: ORAL PAIN
     Route: 065
     Dates: start: 2014, end: 2014
  4. OXYCODONE [Suspect]
     Active Substance: OXYCODONE
     Indication: PAIN IN JAW
     Route: 065
     Dates: start: 201601, end: 2016
  5. METHADONE [Suspect]
     Active Substance: METHADONE HYDROCHLORIDE
     Indication: ORAL PAIN
     Route: 065
     Dates: start: 2016, end: 2016
  6. NUCYNTA ER [Suspect]
     Active Substance: TAPENTADOL HYDROCHLORIDE
     Indication: ORAL PAIN
     Route: 065
     Dates: start: 2014, end: 2014
  7. TRAMADOL. [Suspect]
     Active Substance: TRAMADOL
     Indication: PAIN IN JAW
     Route: 065
     Dates: start: 2016
  8. NUCYNTA [Suspect]
     Active Substance: TAPENTADOL HYDROCHLORIDE
     Indication: PAIN IN JAW
     Route: 048
     Dates: start: 2014, end: 2014
  9. NUCYNTA [Suspect]
     Active Substance: TAPENTADOL HYDROCHLORIDE
     Indication: ORAL PAIN
     Route: 048
     Dates: start: 2014, end: 2014
  10. METHADONE [Suspect]
     Active Substance: METHADONE HYDROCHLORIDE
     Indication: PAIN IN JAW
     Route: 065
     Dates: start: 2016, end: 2016
  11. BONIVA [Concomitant]
     Active Substance: IBANDRONATE SODIUM
     Indication: OSTEOGENESIS IMPERFECTA
     Route: 048
  12. ALPRAZOLAM. [Concomitant]
     Active Substance: ALPRAZOLAM
     Indication: SLEEP DISORDER
     Route: 048
     Dates: start: 2016
  13. OXYCODONE [Suspect]
     Active Substance: OXYCODONE
     Indication: ORAL PAIN
     Route: 065
     Dates: start: 201601, end: 2016
  14. METHIMAZOLE. [Concomitant]
     Active Substance: METHIMAZOLE
     Indication: HYPERTHYROIDISM
     Route: 048
     Dates: start: 2014
  15. NUCYNTA [Suspect]
     Active Substance: TAPENTADOL HYDROCHLORIDE
     Indication: ORAL PAIN
     Route: 048
     Dates: start: 2014, end: 201601
  16. NUCYNTA ER [Suspect]
     Active Substance: TAPENTADOL HYDROCHLORIDE
     Indication: PAIN IN JAW
     Route: 065
     Dates: start: 2014, end: 2014
  17. TRAMADOL. [Suspect]
     Active Substance: TRAMADOL
     Indication: ORAL PAIN
     Route: 065
     Dates: start: 2016

REACTIONS (11)
  - Fall [Recovered/Resolved]
  - Feeling abnormal [Unknown]
  - Drug ineffective [Recovered/Resolved]
  - Overdose [Recovered/Resolved]
  - Urinary tract infection [Recovered/Resolved]
  - Somnolence [Unknown]
  - Lung neoplasm malignant [Recovered/Resolved]
  - Hip fracture [Recovered/Resolved]
  - Unresponsive to stimuli [Recovered/Resolved]
  - Cognitive disorder [Recovered/Resolved]
  - Vomiting [Not Recovered/Not Resolved]

NARRATIVE: CASE EVENT DATE: 2014
